FAERS Safety Report 14073010 (Version 1)
Quarter: 2017Q4

REPORT INFORMATION
  Report Type: Spontaneous
  Country: US (occurrence: None)
  Receive Date: 20171011
  Receipt Date: 20171011
  Transmission Date: 20180321
  Serious: No
  Sender: FDA-Public Use
  Company Number: None

PATIENT

DRUGS (1)
  1. PRECEDEX [Suspect]
     Active Substance: DEXMEDETOMIDINE HYDROCHLORIDE
     Dosage: INJECTABLE INTRAVENOUS 400 MCG/100 ML SINGLE-DOSE BOTTLE
     Route: 042

REACTIONS (7)
  - Somnolence [None]
  - Drug prescribing error [None]
  - Device computer issue [None]
  - Accidental overdose [None]
  - Dose calculation error [None]
  - Respiratory rate decreased [None]
  - Incorrect drug administration rate [None]
